FAERS Safety Report 6690534-1 (Version None)
Quarter: 2010Q2

REPORT INFORMATION
  Report Type: 
  Country: None (occurrence: None)
  Receive Date: 20100421
  Receipt Date: 20100411
  Transmission Date: 20101027
  Serious: Yes (Hospitalization, Other)
  Sender: FDA-Public Use
  Company Number: US-AMGEN-QUU404790

PATIENT
  Sex: Female

DRUGS (2)
  1. ENBREL [Suspect]
     Indication: RHEUMATOID ARTHRITIS
     Route: 058
     Dates: start: 20060901
  2. METHOTREXATE [Concomitant]
     Dates: start: 20100406

REACTIONS (6)
  - ARTHRALGIA [None]
  - ASTHENIA [None]
  - CAESAREAN SECTION [None]
  - HIGH RISK PREGNANCY [None]
  - JOINT DESTRUCTION [None]
  - PAIN [None]
